FAERS Safety Report 19274300 (Version 1)
Quarter: 2021Q2

REPORT INFORMATION
  Report Type: Spontaneous
  Country: IT (occurrence: IT)
  Receive Date: 20210519
  Receipt Date: 20210519
  Transmission Date: 20210717
  Serious: Yes (Hospitalization)
  Sender: FDA-Public Use
  Company Number: IT-ELI_LILLY_AND_COMPANY-IT202105004440

PATIENT
  Age: 59 Year
  Sex: Male

DRUGS (3)
  1. RISPERDAL [Concomitant]
     Active Substance: RISPERIDONE
     Indication: SCHIZOPHRENIA
     Dosage: 2 MG, UNKNOWN
     Route: 048
  2. OLANZAPINE. [Suspect]
     Active Substance: OLANZAPINE
     Indication: SCHIZOPHRENIA
     Dosage: 450 MG, SINGLE
     Route: 030
     Dates: start: 20210319, end: 20210319
  3. LORAZEPAM. [Concomitant]
     Active Substance: LORAZEPAM
     Indication: SCHIZOPHRENIA
     Dosage: 1.25 MG, UNKNOWN
     Route: 048

REACTIONS (2)
  - Altered state of consciousness [Unknown]
  - Hypotension [Unknown]

NARRATIVE: CASE EVENT DATE: 20210319
